FAERS Safety Report 17142053 (Version 2)
Quarter: 2020Q1

REPORT INFORMATION
  Report Type: Spontaneous
  Country: US (occurrence: US)
  Receive Date: 20191211
  Receipt Date: 20200118
  Transmission Date: 20200409
  Serious: No
  Sender: FDA-Public Use
  Company Number: US-ASTRAZENECA-2019SF62125

PATIENT
  Sex: Male
  Weight: 122.5 kg

DRUGS (4)
  1. VENTOLIN [Concomitant]
     Active Substance: ALBUTEROL SULFATE
     Indication: DYSPNOEA
     Dosage: AS REQUIRED
     Route: 055
     Dates: start: 2019
  2. SYMBICORT [Suspect]
     Active Substance: BUDESONIDE\FORMOTEROL FUMARATE DIHYDRATE
     Indication: CHRONIC OBSTRUCTIVE PULMONARY DISEASE
     Dosage: 160/4.5 MCG, 2 PUFFS TWO TIMES A DAY
     Route: 055
     Dates: start: 2013
  3. PROAIR HFA [Concomitant]
     Active Substance: ALBUTEROL SULFATE
     Dosage: AS REQUIRED
     Route: 055
     Dates: start: 2018, end: 2019
  4. ALBUTEROL SULFATE NEBULIZER [Concomitant]
     Active Substance: ALBUTEROL SULFATE
     Indication: DYSPNOEA
     Dosage: AS REQUIRED
     Route: 055
     Dates: start: 2013

REACTIONS (6)
  - Intentional device misuse [Unknown]
  - Intentional product misuse [Unknown]
  - Seasonal allergy [Unknown]
  - Device issue [Unknown]
  - Dyspnoea [Not Recovered/Not Resolved]
  - Incorrect dose administered by device [Unknown]
